FAERS Safety Report 14479961 (Version 1)
Quarter: 2018Q1

REPORT INFORMATION
  Report Type: Spontaneous
  Country: IT (occurrence: IT)
  Receive Date: 20180202
  Receipt Date: 20180202
  Transmission Date: 20180509
  Serious: Yes (Hospitalization, Other)
  Sender: FDA-Public Use
  Company Number: IT-TEVA-2017-IT-838517

PATIENT
  Age: 82 Year
  Sex: Female

DRUGS (12)
  1. LEVOFLOXACIN. [Interacting]
     Active Substance: LEVOFLOXACIN
     Dosage: MAINTENANCE DOSE
     Route: 048
     Dates: start: 20150522
  2. FENTANYL. [Interacting]
     Active Substance: FENTANYL
     Indication: PROCEDURAL PAIN
     Dosage: 25 MICROGRAM
     Route: 062
     Dates: start: 20150528, end: 20150602
  3. VANCOMYCIN [Interacting]
     Active Substance: VANCOMYCIN
     Indication: STAPHYLOCOCCAL INFECTION
     Dosage: 1 G IN TOTAL
     Route: 065
     Dates: start: 20150521, end: 20150521
  4. VANCOMYCIN [Interacting]
     Active Substance: VANCOMYCIN
     Route: 042
     Dates: start: 20150522
  5. FENTANYL. [Interacting]
     Active Substance: FENTANYL
     Dosage: 25 MICROGRAM, UNK
     Route: 062
     Dates: start: 20150528, end: 20150602
  6. FENTANYL. [Interacting]
     Active Substance: FENTANYL
     Dosage: 100 MCG 1 TABLET UPGRADEABLE TO 200 MCG
     Route: 002
     Dates: start: 20150602, end: 20150602
  7. VANCOMYCIN [Interacting]
     Active Substance: VANCOMYCIN
     Dosage: BY A SWAB APPLIED TO A LEFT FOOT ULCER POSITIVE FOR STAPHYLOCOCCUS AUREUS
     Route: 061
     Dates: start: 2015
  8. LEVOFLOXACIN. [Suspect]
     Active Substance: LEVOFLOXACIN
     Indication: STAPHYLOCOCCAL INFECTION
     Dosage: LOADING DOSE ; IN TOTAL
     Route: 048
     Dates: start: 20150521, end: 20150521
  9. RIFAMPICIN [Interacting]
     Active Substance: RIFAMPIN
     Indication: STAPHYLOCOCCAL INFECTION
     Dosage: UNKNOWN DOSING REGIMEN
     Route: 042
     Dates: start: 20150521
  10. FENTANYL. [Interacting]
     Active Substance: FENTANYL
     Indication: ISCHAEMIC LIMB PAIN
     Dosage: 12 MICROGRAM, TRANSDERMAL
     Route: 062
     Dates: start: 20150521, end: 20150528
  11. FENTANYL. [Interacting]
     Active Substance: FENTANYL
     Dosage: 12 MICROGRAM, UNK
     Route: 062
     Dates: start: 20150521, end: 20150528
  12. FENTANYL. [Interacting]
     Active Substance: FENTANYL
     Dosage: 100 MCG 1 TABLET UPGRADEABLE TO 200 MCG.
     Route: 002
     Dates: start: 20150602, end: 20150602

REACTIONS (10)
  - Hallucination [Recovered/Resolved]
  - Overdose [Recovered/Resolved]
  - Tremor [Recovered/Resolved]
  - Miosis [Recovered/Resolved]
  - Somnolence [Recovered/Resolved]
  - Drug interaction [Recovered/Resolved]
  - Altered state of consciousness [Recovered/Resolved]
  - Toxicity to various agents [Recovered/Resolved]
  - Status epilepticus [Recovered/Resolved]
  - Sopor [Recovered/Resolved]

NARRATIVE: CASE EVENT DATE: 20150602
